FAERS Safety Report 8207927-3 (Version None)
Quarter: 2012Q1

REPORT INFORMATION
  Report Type: 
  Country: None (occurrence: None)
  Receive Date: 20120314
  Receipt Date: 20120307
  Transmission Date: 20120608
  Serious: No
  Sender: FDA-Public Use
  Company Number: US-PFIZER INC-2012057186

PATIENT
  Sex: Female
  Weight: 71.655 kg

DRUGS (10)
  1. CODEINE [Suspect]
     Indication: GALLBLADDER PAIN
     Dosage: UNK
  2. SEROQUEL [Concomitant]
     Indication: DEPRESSION
     Dosage: 400 MG, DAILY
  3. BENZATHINE PENICILLIN G [Suspect]
     Indication: CHOLECYSTITIS INFECTIVE
     Dosage: UNK
  4. BUSPAR [Concomitant]
     Indication: DEPRESSION
     Dosage: 30 MG, 2X/DAY
  5. LYRICA [Suspect]
     Indication: FIBROMYALGIA
     Dosage: UNK
  6. SKELAXIN [Suspect]
     Indication: FIBROMYALGIA
     Dosage: UNK
  7. PROZAC [Suspect]
     Indication: MENTAL DISORDER
     Dosage: UNK
  8. PAXIL [Suspect]
     Indication: MENTAL DISORDER
     Dosage: UNK
  9. ULTRAM [Suspect]
     Indication: FIBROMYALGIA
     Dosage: UNK
  10. ASPIRIN [Suspect]
     Dosage: UNK

REACTIONS (2)
  - DYSPNOEA [None]
  - DRUG HYPERSENSITIVITY [None]
